FAERS Safety Report 9704821 (Version 1)
Quarter: 2013Q4

REPORT INFORMATION
  Report Type: Spontaneous
  Country: JP (occurrence: JP)
  Receive Date: 20131122
  Receipt Date: 20131122
  Transmission Date: 20140711
  Serious: Yes (Other)
  Sender: FDA-Public Use
  Company Number: JP-ELI_LILLY_AND_COMPANY-JP201311004734

PATIENT
  Age: 84 Year
  Sex: Female

DRUGS (3)
  1. FORTEO [Suspect]
     Indication: OSTEOPOROSIS
     Dosage: 20 UNK, UNK
     Route: 058
     Dates: start: 201110, end: 201111
  2. ACTOS [Concomitant]
     Dosage: UNK
     Route: 048
  3. SELOKEN                            /00376902/ [Concomitant]
     Dosage: UNK
     Route: 048

REACTIONS (1)
  - Blood potassium increased [Recovered/Resolved]
